FAERS Safety Report 9331318 (Version 1)
Quarter: 2013Q2

REPORT INFORMATION
  Report Type: Spontaneous
  Country: US (occurrence: US)
  Receive Date: 20130605
  Receipt Date: 20130605
  Transmission Date: 20140414
  Serious: No
  Sender: FDA-Public Use
  Company Number: US-TEVA-409559USA

PATIENT
  Age: 62 Year
  Sex: Female
  Weight: 107.14 kg

DRUGS (3)
  1. PROAIR HFA [Suspect]
     Indication: BRONCHOSPASM
  2. FLOVENT [Concomitant]
     Indication: ASTHMA
  3. PREDNISONE [Concomitant]
     Indication: ASTHMA

REACTIONS (2)
  - Asthma [Recovered/Resolved]
  - Bronchitis [Recovered/Resolved]
